FAERS Safety Report 6888280-4 (Version None)
Quarter: 2010Q3

REPORT INFORMATION
  Report Type: 
  Country: None (occurrence: None)
  Receive Date: 20100730
  Receipt Date: 20100728
  Transmission Date: 20110219
  Serious: Yes (Other)
  Sender: FDA-Public Use
  Company Number: DE-BRISTOL-MYERS SQUIBB COMPANY-15124696

PATIENT
  Age: 73 Year
  Sex: Female

DRUGS (8)
  1. ABILIFY [Suspect]
     Indication: DEPRESSION
     Route: 048
     Dates: start: 20100508, end: 20100514
  2. ABILIFY [Suspect]
     Indication: PSYCHOTIC DISORDER
     Route: 048
     Dates: start: 20100508, end: 20100514
  3. SIMVASTATIN [Concomitant]
     Dosage: COATED TABLETS
     Route: 048
  4. TORSEMIDE [Concomitant]
     Dosage: TABLETS
     Route: 048
  5. METFORMIN HCL [Concomitant]
  6. AMARYL [Concomitant]
  7. ACETYLSALICYLIC ACID SRT [Concomitant]
  8. VENLAFAXINE HCL [Concomitant]
     Dosage: TREVILOR RET

REACTIONS (2)
  - HYPERTENSION [None]
  - HYPERTENSIVE CRISIS [None]
